FAERS Safety Report 6646051-8 (Version None)
Quarter: 2010Q1

REPORT INFORMATION
  Report Type: 
  Country: None (occurrence: None)
  Receive Date: 20100323
  Receipt Date: 20100317
  Transmission Date: 20100710
  Serious: Yes (Hospitalization, Disabling)
  Sender: FDA-Public Use
  Company Number: ZA-B.I. PHARMACEUTICALS,INC./RIDGEFIELD-2010-ZA-00040ZA

PATIENT
  Age: 51 Year
  Sex: Female

DRUGS (1)
  1. CO-MICARDIS [Suspect]
     Indication: HYPERTENSION
     Dates: start: 20040101, end: 20091106

REACTIONS (2)
  - DRUG INEFFECTIVE [None]
  - PHOTOSENSITIVITY REACTION [None]
